FAERS Safety Report 10811756 (Version 1)
Quarter: 2015Q1

REPORT INFORMATION
  Report Type: Spontaneous
  Country: US (occurrence: None)
  Receive Date: 20150213
  Receipt Date: 20150213
  Transmission Date: 20150721
  Serious: Yes (Hospitalization)
  Sender: FDA-Public Use
  Company Number: None

PATIENT
  Age: 52 Year
  Sex: Female
  Weight: 68.04 kg

DRUGS (1)
  1. KETOROLAC TROMETHAMINE, HOSPIRA, 60 MG (30MG/ML) 2 ML [Suspect]
     Active Substance: KETOROLAC TROMETHAMINE
     Indication: MIGRAINE
     Route: 030
     Dates: start: 20150124, end: 20150124

REACTIONS (8)
  - Headache [None]
  - Impaired healing [None]
  - Hypoaesthesia [None]
  - Dehydration [None]
  - Vomiting [None]
  - Injection site ulcer [None]
  - Chest pain [None]
  - Malaise [None]

NARRATIVE: CASE EVENT DATE: 20150124
